FAERS Safety Report 5505343-6 (Version None)
Quarter: 2007Q4

REPORT INFORMATION
  Report Type: 
  Country: None (occurrence: None)
  Receive Date: 20071102
  Receipt Date: 20071023
  Transmission Date: 20080405
  Serious: Yes (Hospitalization)
  Sender: FDA-Public Use
  Company Number: JP-JNJFOC-20071006593

PATIENT
  Sex: Female

DRUGS (15)
  1. MICONAZOLE [Suspect]
     Route: 048
  2. MICONAZOLE [Suspect]
     Indication: ORAL CANDIDIASIS
     Route: 048
  3. DONEPEZIL HCL [Concomitant]
     Route: 048
  4. AMLODIPINE BESYLATE [Concomitant]
     Route: 048
  5. IFENPRODIL TARTRATE [Concomitant]
     Route: 048
  6. EPERISONE HYDROCHLORIDE [Concomitant]
     Route: 048
  7. TEPRENONE [Concomitant]
     Route: 048
  8. EPINASTINE HYDROCHLORIDE [Concomitant]
     Route: 048
  9. LANSOPRAZOLE [Concomitant]
     Route: 048
  10. LOXOPROFEN SODIUM HYDRATE [Concomitant]
     Route: 048
  11. DIAZEPAM [Concomitant]
     Route: 048
  12. FURSULTIAMINE HYDROCHLORIDE [Concomitant]
     Route: 048
  13. FLAVIN ADENINE DINUCLEOTIDE SODIUM [Concomitant]
     Route: 048
  14. ASCORBIC ACID [Concomitant]
     Route: 048
  15. CARBAMAZEPINE [Concomitant]
     Route: 048

REACTIONS (2)
  - C-REACTIVE PROTEIN INCREASED [None]
  - WHITE BLOOD CELL COUNT INCREASED [None]
